FAERS Safety Report 8853833 (Version 1)
Quarter: 2012Q4

REPORT INFORMATION
  Report Type: 
  Country: US (occurrence: US)
  Receive Date: 20121022
  Receipt Date: 20121022
  Transmission Date: 20130627
  Serious: No
  Sender: FDA-Public Use
  Company Number: US-PFIZER INC-2012260374

PATIENT
  Age: 38 Year
  Sex: Female

DRUGS (1)
  1. CAMPTOSAR [Suspect]
     Indication: COLON CANCER
     Dosage: 210 mg, Every two weeks
     Dates: start: 20090730

REACTIONS (2)
  - Disease progression [Unknown]
  - Colon cancer [Unknown]
